FAERS Safety Report 16117749 (Version 1)
Quarter: 2019Q1

REPORT INFORMATION
  Report Type: Spontaneous
  Country: CN (occurrence: CN)
  Receive Date: 20190326
  Receipt Date: 20190326
  Transmission Date: 20190418
  Serious: Yes (Hospitalization)
  Sender: FDA-Public Use
  Company Number: CN-BAYER-2019-055080

PATIENT
  Age: 55 Year
  Sex: Male

DRUGS (1)
  1. AVELOX [Suspect]
     Active Substance: MOXIFLOXACIN HYDROCHLORIDE
     Indication: PNEUMONIA LEGIONELLA
     Dosage: DAILY DOSE 400MG
     Route: 041
     Dates: start: 20150319, end: 20150331

REACTIONS (6)
  - Multiple organ dysfunction syndrome [None]
  - Sepsis [None]
  - Hypochloraemia [None]
  - Hyponatraemia [None]
  - Rhabdomyolysis [None]
  - Pneumonia [None]

NARRATIVE: CASE EVENT DATE: 20150319
